FAERS Safety Report 10591671 (Version 1)
Quarter: 2014Q4

REPORT INFORMATION
  Report Type: Spontaneous
  Country: US (occurrence: US)
  Receive Date: 20141118
  Receipt Date: 20141118
  Transmission Date: 20150529
  Serious: Yes (Life-Threatening, Hospitalization)
  Sender: FDA-Public Use
  Company Number: US-ELI_LILLY_AND_COMPANY-US201411005915

PATIENT
  Sex: Female

DRUGS (9)
  1. CARAFATE [Concomitant]
     Active Substance: SUCRALFATE
  2. TUMS                               /00193601/ [Concomitant]
     Active Substance: CALCIUM CARBONATE\MAGNESIUM CARBONATE\MAGNESIUM TRISILICATE
  3. BABY ASPIRIN [Concomitant]
     Active Substance: ASPIRIN
  4. EFFIENT [Suspect]
     Active Substance: PRASUGREL HYDROCHLORIDE
     Indication: STENT PLACEMENT
     Dosage: 10 MG, QD
     Route: 048
     Dates: start: 20141011, end: 20141031
  5. ZOCOR [Concomitant]
     Active Substance: SIMVASTATIN
  6. PLAVIX [Concomitant]
     Active Substance: CLOPIDOGREL BISULFATE
  7. METOPROLOL [Concomitant]
     Active Substance: METOPROLOL
  8. SENOKOT [Concomitant]
     Active Substance: SENNOSIDES
  9. PROTONIX [Concomitant]
     Active Substance: PANTOPRAZOLE SODIUM

REACTIONS (1)
  - Gastrointestinal haemorrhage [Unknown]
